FAERS Safety Report 6413844-1 (Version None)
Quarter: 2009Q4

REPORT INFORMATION
  Report Type: 
  Country: None (occurrence: None)
  Receive Date: 20091026
  Receipt Date: 20091016
  Transmission Date: 20100525
  Serious: Yes (Other)
  Sender: FDA-Public Use
  Company Number: A0812200A

PATIENT
  Age: 24 Year
  Sex: Female

DRUGS (3)
  1. LAMOTRIGINE [Suspect]
     Route: 048
     Dates: start: 20090101
  2. LAMICTAL [Suspect]
     Dates: start: 20030101, end: 20090101
  3. NO CONCURRENT MEDICATION [Concomitant]

REACTIONS (9)
  - CONVULSION [None]
  - DRUG EXPOSURE DURING PREGNANCY [None]
  - DRUG INEFFECTIVE [None]
  - FEELING ABNORMAL [None]
  - GRAND MAL CONVULSION [None]
  - LIVE BIRTH [None]
  - RASH [None]
  - RASH PRURITIC [None]
  - TREATMENT NONCOMPLIANCE [None]
